FAERS Safety Report 11467651 (Version 1)
Quarter: 2015Q3

REPORT INFORMATION
  Report Type: Report from Study
  Country: BR (occurrence: BR)
  Receive Date: 20150908
  Receipt Date: 20150908
  Transmission Date: 20151125
  Serious: Yes (Death, Other)
  Sender: FDA-Public Use
  Company Number: PHHY2015BR107249

PATIENT

DRUGS (1)
  1. EXELON PATCH [Suspect]
     Active Substance: RIVASTIGMINE
     Indication: DEMENTIA ALZHEIMER^S TYPE
     Dosage: PATCH 10 (CM2)
     Route: 062
     Dates: start: 201407

REACTIONS (7)
  - Hypersomnia [Recovering/Resolving]
  - Dementia Alzheimer^s type [None]
  - Dysphagia [Unknown]
  - Lung disorder [Fatal]
  - Drug ineffective [Unknown]
  - Decreased activity [Recovering/Resolving]
  - Feeding disorder [Unknown]
